FAERS Safety Report 8599692-5 (Version None)
Quarter: 2012Q3

REPORT INFORMATION
  Report Type: 
  Country: None (occurrence: None)
  Receive Date: 20120802
  Receipt Date: 20120724
  Transmission Date: 20120928
  Serious: Yes (Other)
  Sender: FDA-Public Use
  Company Number: AUR-APL-2012-03282

PATIENT
  Age: 60 Year
  Sex: Male
  Weight: 119 kg

DRUGS (3)
  1. GLICLAZIDE (GLICLAZIDE) [Concomitant]
  2. RAMIPRIL [Concomitant]
  3. METFFORMIN HYDROCHLORIDE [Suspect]
     Indication: DIABETES MELLITUS
     Dosage: 850MG-1.5G

REACTIONS (7)
  - BLOOD PRESSURE DIASTOLIC INCREASED [None]
  - ABNORMAL BEHAVIOUR [None]
  - GLYCOSYLATED HAEMOGLOBIN INCREASED [None]
  - DIABETIC NEUROPATHY [None]
  - LETHARGY [None]
  - VITAMIN B12 DEFICIENCY [None]
  - COGNITIVE DISORDER [None]
